FAERS Safety Report 13058533 (Version 2)
Quarter: 2017Q1

REPORT INFORMATION
  Report Type: Spontaneous
  Country: US (occurrence: US)
  Receive Date: 20161223
  Receipt Date: 20170109
  Transmission Date: 20170428
  Serious: Yes (Death)
  Sender: FDA-Public Use
  Company Number: US-UNITED THERAPEUTICS-UNT-2016-019296

PATIENT
  Age: 66 Year
  Sex: Female
  Weight: 102.49 kg

DRUGS (1)
  1. REMODULIN [Suspect]
     Active Substance: TREPROSTINIL
     Indication: PULMONARY ARTERIAL HYPERTENSION
     Dosage: 0.059 ?G/KG, CONTINUING
     Route: 041
     Dates: start: 20090409

REACTIONS (2)
  - Cardio-respiratory arrest [Fatal]
  - Dyspnoea [Unknown]

NARRATIVE: CASE EVENT DATE: 20161218
